FAERS Safety Report 21142394 (Version 1)
Quarter: 2022Q3

REPORT INFORMATION
  Report Type: Spontaneous
  Country: KR (occurrence: KR)
  Receive Date: 20220728
  Receipt Date: 20220728
  Transmission Date: 20221027
  Serious: Yes (Death, Life-Threatening, Other)
  Sender: FDA-Public Use
  Company Number: KR-SLATE RUN PHARMACEUTICALS-22KR001228

PATIENT

DRUGS (11)
  1. GANCICLOVIR [Suspect]
     Active Substance: GANCICLOVIR
     Indication: Cytomegalovirus infection
     Dosage: UNK, HIGH DOSE
  2. GANCICLOVIR [Suspect]
     Active Substance: GANCICLOVIR
     Dosage: 300 MILLIGRAM, QD, ADJUSTED TO THE ELEVATED SERUM CREATININE LEVEL
     Route: 042
  3. GANCICLOVIR [Suspect]
     Active Substance: GANCICLOVIR
     Dosage: 165 MILLIGRAM, QD, ADJUSTED ACCORDING TO RENAL FUNCTION
     Route: 042
  4. GANCICLOVIR [Suspect]
     Active Substance: GANCICLOVIR
     Dosage: 5 MILLIGRAM PER KILOGRAM, QD, MAINTENANCE DOSE
     Route: 042
  5. GANCICLOVIR [Suspect]
     Active Substance: GANCICLOVIR
     Dosage: 10 MILLIGRAM PER KILOGRAM, QD
     Route: 042
  6. CIDOFOVIR [Concomitant]
     Active Substance: CIDOFOVIR
     Indication: BK polyomavirus test positive
     Dosage: 5 MILLIGRAM PER KILOGRAM, QD
  7. CIDOFOVIR [Concomitant]
     Active Substance: CIDOFOVIR
     Indication: Cytomegalovirus infection
  8. PROBENECID [Concomitant]
     Active Substance: PROBENECID
     Indication: Cytomegalovirus infection
     Route: 048
  9. PROBENECID [Concomitant]
     Active Substance: PROBENECID
     Indication: BK polyomavirus test positive
  10. SODIUM CHLORIDE [Concomitant]
     Active Substance: SODIUM CHLORIDE
     Indication: BK polyomavirus test positive
  11. SODIUM CHLORIDE [Concomitant]
     Active Substance: SODIUM CHLORIDE
     Indication: Cytomegalovirus infection

REACTIONS (9)
  - Multiple organ dysfunction syndrome [Fatal]
  - Cytomegalovirus infection [Fatal]
  - Respiratory acidosis [Not Recovered/Not Resolved]
  - Treatment failure [Not Recovered/Not Resolved]
  - Cytomegalovirus gastritis [Not Recovered/Not Resolved]
  - Cytomegalovirus colitis [Not Recovered/Not Resolved]
  - Pneumonia cytomegaloviral [Not Recovered/Not Resolved]
  - Encephalitis cytomegalovirus [Not Recovered/Not Resolved]
  - Myelosuppression [Not Recovered/Not Resolved]
